FAERS Safety Report 19990090 (Version 1)
Quarter: 2021Q4

REPORT INFORMATION
  Report Type: Spontaneous
  Country: US (occurrence: US)
  Receive Date: 20211025
  Receipt Date: 20211025
  Transmission Date: 20220303
  Serious: Yes (Other)
  Sender: FDA-Public Use
  Company Number: US-ALKEM LABORATORIES LIMITED-US-ALKEM-2021-06429

PATIENT
  Sex: Male

DRUGS (1)
  1. FINASTERIDE [Suspect]
     Active Substance: FINASTERIDE
     Indication: Alopecia
     Dosage: 5 MILLIGRAM, QD
     Route: 048

REACTIONS (4)
  - Penile infection [Unknown]
  - Staphylococcal infection [Unknown]
  - Penile size reduced [Unknown]
  - Sensory loss [Unknown]
